FAERS Safety Report 23685971 (Version 1)
Quarter: 2024Q1

REPORT INFORMATION
  Report Type: Spontaneous
  Country: US (occurrence: US)
  Receive Date: 20240329
  Receipt Date: 20240329
  Transmission Date: 20240410
  Serious: Yes (Other)
  Sender: FDA-Public Use
  Company Number: US-MLMSERVICE-20240304-4863795-1

PATIENT
  Age: 1 Year
  Sex: Female

DRUGS (18)
  1. BUSULFAN [Suspect]
     Active Substance: BUSULFAN
     Indication: Bone marrow conditioning regimen
     Route: 065
  2. THYMOCYTE IMMUNE GLOBULIN NOS [Suspect]
     Active Substance: THYMOCYTE IMMUNE GLOBULIN NOS
     Indication: Bone marrow conditioning regimen
     Route: 065
  3. CYCLOPHOSPHAMIDE [Suspect]
     Active Substance: CYCLOPHOSPHAMIDE
     Indication: Bone marrow conditioning regimen
     Route: 065
  4. MELPHALAN [Suspect]
     Active Substance: MELPHALAN
     Indication: Bone marrow conditioning regimen
     Route: 065
  5. RITUXIMAB [Suspect]
     Active Substance: RITUXIMAB
     Indication: Bone marrow conditioning regimen
     Route: 065
  6. THIOTEPA [Suspect]
     Active Substance: THIOTEPA
     Indication: Bone marrow conditioning regimen
     Route: 065
  7. IMMUNOGLOBULIN [Concomitant]
     Indication: Hypogammaglobulinaemia
     Route: 042
  8. METHYLPREDNISOLONE [Concomitant]
     Active Substance: METHYLPREDNISOLONE
     Indication: Drug eruption
     Route: 065
  9. RIBAVIRIN [Concomitant]
     Active Substance: RIBAVIRIN
     Indication: Measles
     Dosage: 6 HOURS FOR 16 DOSES
     Route: 042
  10. RIBAVIRIN [Concomitant]
     Active Substance: RIBAVIRIN
     Dosage: DOSE Q8HOURS
     Route: 042
  11. RIBAVIRIN [Concomitant]
     Active Substance: RIBAVIRIN
     Dosage: DAY 1
     Route: 042
  12. INTERFERON ALFA-2A OR INTERFERON ALFA-2B [Concomitant]
     Active Substance: INTERFERON ALFA-2A OR INTERFERON ALFA-2B
     Indication: Measles
     Dosage: DAY 2: 200,000 UNITS/M2 IT
     Route: 039
  13. INTERFERON ALFA-2A OR INTERFERON ALFA-2B [Concomitant]
     Active Substance: INTERFERON ALFA-2A OR INTERFERON ALFA-2B
     Dosage: DAY 3: 300,000 UNITS/M2 IT
     Route: 039
  14. INTERFERON ALFA-2A OR INTERFERON ALFA-2B [Concomitant]
     Active Substance: INTERFERON ALFA-2A OR INTERFERON ALFA-2B
     Dosage: DAY 4: 400,000 UNITS/M2 IT
     Route: 037
  15. INTERFERON ALFA-2A OR INTERFERON ALFA-2B [Concomitant]
     Active Substance: INTERFERON ALFA-2A OR INTERFERON ALFA-2B
     Dosage: DAY 5: 500,000 UNITS/M2 IT
     Route: 037
  16. INTERFERON ALFA-2A OR INTERFERON ALFA-2B [Concomitant]
     Active Substance: INTERFERON ALFA-2A OR INTERFERON ALFA-2B
     Dosage: DAY 8+:1,000,000 UNITS/M2 IT ADMINISTERED TWICE WEEKLY
     Route: 038
  17. INTERFERON ALFA-2A OR INTERFERON ALFA-2B [Concomitant]
     Active Substance: INTERFERON ALFA-2A OR INTERFERON ALFA-2B
     Dosage: DAY 1: 100,000 UNITS/M2 IT
     Route: 039
  18. INOSINE PRANOBEX [Concomitant]
     Active Substance: INOSINE PRANOBEX
     Indication: Measles
     Route: 065

REACTIONS (9)
  - Respiratory failure [Unknown]
  - Temperature intolerance [Unknown]
  - Irritability [Unknown]
  - Bradycardia [Unknown]
  - Vasculitis [Unknown]
  - Demyelination [Unknown]
  - Hypotension [Unknown]
  - Lethargy [Unknown]
  - Somnolence [Unknown]
